FAERS Safety Report 16781693 (Version 1)
Quarter: 2019Q3

REPORT INFORMATION
  Report Type: Spontaneous
  Country: US (occurrence: US)
  Receive Date: 20190906
  Receipt Date: 20190906
  Transmission Date: 20191005
  Serious: No
  Sender: FDA-Public Use
  Company Number: US-IPSEN BIOPHARMACEUTICALS, INC.-2019-15717

PATIENT
  Age: 37 Year
  Sex: Female

DRUGS (1)
  1. DYSPORT [Suspect]
     Active Substance: ABOBOTULINUMTOXINA
     Indication: SKIN WRINKLING
     Dosage: 50 IU
     Dates: start: 20190425, end: 20190425

REACTIONS (3)
  - Discomfort [Unknown]
  - Injection site haematoma [Unknown]
  - Injection site pain [Unknown]

NARRATIVE: CASE EVENT DATE: 20190425
